FAERS Safety Report 24431306 (Version 2)
Quarter: 2024Q4

REPORT INFORMATION
  Report Type: Spontaneous
  Country: US (occurrence: US)
  Receive Date: 20241014
  Receipt Date: 20241209
  Transmission Date: 20250115
  Serious: No
  Sender: SANOFI AVENTIS
  Company Number: US-SA-2024SA292949

PATIENT
  Age: 69 Year
  Sex: Male

DRUGS (4)
  1. DUPIXENT [Suspect]
     Active Substance: DUPILUMAB
     Indication: Asthma
     Dosage: UNK
     Route: 065
     Dates: start: 2021, end: 2022
  2. DUPIXENT [Suspect]
     Active Substance: DUPILUMAB
     Indication: Nasal polyps
     Dosage: 300 MG, QOW
     Route: 058
     Dates: start: 202406
  3. AMOXICILLIN [Concomitant]
     Active Substance: AMOXICILLIN
     Indication: Wheezing
  4. AMOXICILLIN [Concomitant]
     Active Substance: AMOXICILLIN
     Indication: Cough

REACTIONS (2)
  - Arthralgia [Not Recovered/Not Resolved]
  - Therapeutic response decreased [Unknown]

NARRATIVE: CASE EVENT DATE: 20240101
